FAERS Safety Report 4586462-8 (Version None)
Quarter: 2005Q1

REPORT INFORMATION
  Report Type: 
  Country: None (occurrence: None)
  Receive Date: 20050217
  Receipt Date: 20050217
  Transmission Date: 20050727
  Serious: Yes (Death, Life-Threatening, Hospitalization, Disabling, Other)
  Sender: FDA-Public Use
  Company Number: None

PATIENT
  Age: 34 Year
  Sex: Male
  Weight: 77.1115 kg

DRUGS (3)
  1. DILANTIN [Suspect]
     Indication: CONVULSION
     Dosage: NIGHTLY 500 MGS DAILY
  2. CLONAZEPAM [Suspect]
     Indication: INSOMNIA
     Dosage: NIGHTLY 0.5 MG TABS
  3. CLONAZEPAM [Suspect]
     Indication: PAIN
     Dosage: NIGHTLY 0.5 MG TABS

REACTIONS (3)
  - CONVULSION [None]
  - HOMELESS [None]
  - STRESS [None]
